FAERS Safety Report 8582543-2 (Version None)
Quarter: 2012Q3

REPORT INFORMATION
  Report Type: 
  Country: None (occurrence: None)
  Receive Date: 20120809
  Receipt Date: 20120730
  Transmission Date: 20120928
  Serious: Yes (Hospitalization, Other)
  Sender: FDA-Public Use
  Company Number: US-ELI_LILLY_AND_COMPANY-US201202002009

PATIENT
  Sex: Female

DRUGS (9)
  1. LEVOTHYROXINE SODIUM [Concomitant]
     Dosage: 0.25 MG, UNK
  2. FORTEO [Suspect]
     Dosage: 20 UG, QD
     Route: 058
  3. FORTEO [Suspect]
     Dosage: 20 UG, QD
     Dates: start: 20120727
  4. AMLODIPINE [Concomitant]
  5. VITAMIN D [Concomitant]
  6. LISINOPRIL [Concomitant]
  7. FLAXSEED OIL [Concomitant]
  8. FORTEO [Suspect]
     Indication: OSTEOPOROSIS
     Dosage: 20 UG, QD
     Route: 058
     Dates: start: 20120202, end: 20120711
  9. CYMBALTA [Concomitant]
     Indication: DEPRESSION
     Dosage: UNK
     Dates: start: 20110901

REACTIONS (9)
  - BACK PAIN [None]
  - DYSGEUSIA [None]
  - NAUSEA [None]
  - ASTHENIA [None]
  - EXTRASYSTOLES [None]
  - INJECTION SITE EXTRAVASATION [None]
  - BLOOD CALCIUM INCREASED [None]
  - PELVIC FRACTURE [None]
  - FALL [None]
